FAERS Safety Report 15504612 (Version 1)
Quarter: 2018Q4

REPORT INFORMATION
  Report Type: Spontaneous
  Country: US (occurrence: US)
  Receive Date: 20181016
  Receipt Date: 20181016
  Transmission Date: 20190205
  Serious: No
  Sender: FDA-Public Use
  Company Number: US-SA-2018SA247069

PATIENT
  Age: 67 Year
  Sex: Male

DRUGS (2)
  1. ATORVASTATIN [Concomitant]
     Active Substance: ATORVASTATIN
     Indication: BLOOD CHOLESTEROL
  2. GOLD BOND ULTIMATE FIRMING NECK AND CHEST CREAM [Suspect]
     Active Substance: PETROLATUM
     Dosage: UNK, BID
     Route: 061
     Dates: start: 20180520, end: 20180908

REACTIONS (5)
  - Burning sensation [Unknown]
  - Erythema [Recovering/Resolving]
  - Skin discolouration [Unknown]
  - Pain [Unknown]
  - Skin mass [Unknown]

NARRATIVE: CASE EVENT DATE: 2018
